FAERS Safety Report 6718304-6 (Version None)
Quarter: 2010Q2

REPORT INFORMATION
  Report Type: 
  Country: None (occurrence: None)
  Receive Date: 20100510
  Receipt Date: 20100425
  Transmission Date: 20101027
  Serious: Yes (Other)
  Sender: FDA-Public Use
  Company Number: RO-BAUSCH-2010BL002294

PATIENT
  Age: 22 Year
  Sex: Female

DRUGS (2)
  1. CIPROFLOXACIN [Suspect]
     Indication: URINARY TRACT INFECTION
  2. SALAZOPYRIN /SWE/ [Suspect]
     Indication: INTERVERTEBRAL DISCITIS

REACTIONS (5)
  - HEPATITIS [None]
  - LEUKOCYTOSIS [None]
  - PETECHIAE [None]
  - RASH MACULO-PAPULAR [None]
  - SHOCK [None]
